FAERS Safety Report 22148394 (Version 1)
Quarter: 2023Q1

REPORT INFORMATION
  Report Type: Spontaneous
  Country: JP (occurrence: JP)
  Receive Date: 20230328
  Receipt Date: 20230328
  Transmission Date: 20230418
  Serious: Yes (Death, Other)
  Sender: FDA-Public Use
  Company Number: JP-ELI_LILLY_AND_COMPANY-JP202302007845

PATIENT
  Age: 72 Year
  Sex: Female
  Weight: 54.2 kg

DRUGS (7)
  1. TRULICITY [Suspect]
     Active Substance: DULAGLUTIDE
     Indication: Type 2 diabetes mellitus
     Dosage: 0.75 MG, WEEKLY (1/W)
     Route: 058
     Dates: start: 20230123, end: 20230125
  2. VOGLIBOSE [Suspect]
     Active Substance: VOGLIBOSE
     Indication: Product used for unknown indication
     Dosage: 0.2 MG, TID
     Route: 048
     Dates: start: 20230116, end: 20230125
  3. DISTIGMINE BROMIDE [Suspect]
     Active Substance: DISTIGMINE BROMIDE
     Indication: Neurogenic bladder
     Dosage: 5 MG
     Route: 048
  4. AMLODIPINE [Concomitant]
     Active Substance: AMLODIPINE BESYLATE
     Indication: Hypertension
     Dosage: 5 MG
     Route: 048
  5. ATORVASTATIN [Concomitant]
     Active Substance: ATORVASTATIN
     Indication: Dyslipidaemia
     Dosage: 10 MG
     Route: 048
  6. DULOXETINE [Concomitant]
     Active Substance: DULOXETINE
     Indication: Depression
     Dosage: 20 MG
     Route: 048
  7. EBRANTIL KAKEN [Concomitant]
     Indication: Neurogenic bladder
     Dosage: 15 MG
     Route: 048

REACTIONS (6)
  - Ileus paralytic [Fatal]
  - Cholinergic syndrome [Fatal]
  - Intestinal ischaemia [Fatal]
  - Septic shock [Unknown]
  - Disseminated intravascular coagulation [Unknown]
  - Abdominal abscess [Unknown]

NARRATIVE: CASE EVENT DATE: 20230124
